FAERS Safety Report 5492169-5 (Version None)
Quarter: 2007Q4

REPORT INFORMATION
  Report Type: 
  Country: None (occurrence: None)
  Receive Date: 20071018
  Receipt Date: 20071001
  Transmission Date: 20080405
  Serious: Yes (Other)
  Sender: FDA-Public Use
  Company Number: 2007S1009797

PATIENT
  Age: 22 Year
  Sex: Male

DRUGS (5)
  1. AMNESTEEM [Suspect]
     Indication: ACNE
  2. METRONIDAZOLE [Concomitant]
  3. VITAMIN B CO ALMUS [Concomitant]
  4. VITAMIN E /00110501/ [Concomitant]
  5. FISH OIL [Concomitant]

REACTIONS (3)
  - ATRIAL TACHYCARDIA [None]
  - CHEILITIS [None]
  - PALPITATIONS [None]
